FAERS Safety Report 18965984 (Version 2)
Quarter: 2021Q1

REPORT INFORMATION
  Report Type: Report from Study
  Country: US (occurrence: US)
  Receive Date: 20210303
  Receipt Date: 20210330
  Transmission Date: 20210420
  Serious: Yes (Hospitalization, Other)
  Sender: FDA-Public Use
  Company Number: US-B.I. PHARMACEUTICALS,INC./RIDGEFIELD-2020-BI-059079

PATIENT
  Age: 68 Year
  Sex: Female

DRUGS (3)
  1. OFEV [Suspect]
     Active Substance: NINTEDANIB
     Indication: INTERSTITIAL LUNG DISEASE
     Dosage: 100MG TWICE A DAY
     Route: 048
     Dates: start: 202010, end: 20201117
  2. OFEV [Suspect]
     Active Substance: NINTEDANIB
     Indication: IDIOPATHIC PULMONARY FIBROSIS
     Dosage: 150 MG BID
     Route: 048
     Dates: start: 20201016
  3. OFEV [Suspect]
     Active Substance: NINTEDANIB
     Route: 048

REACTIONS (18)
  - Gastrointestinal sounds abnormal [Unknown]
  - Abdominal pain [Recovered/Resolved]
  - Sinusitis [Recovering/Resolving]
  - Headache [Not Recovered/Not Resolved]
  - Constipation [Unknown]
  - Nasopharyngitis [Not Recovered/Not Resolved]
  - Liver disorder [Unknown]
  - Nausea [Not Recovered/Not Resolved]
  - Gastric mucosal hypertrophy [Not Recovered/Not Resolved]
  - Abdominal discomfort [Unknown]
  - Cholecystectomy [Unknown]
  - Vomiting [Unknown]
  - Cholelithiasis [Recovered/Resolved]
  - Abnormal dreams [Unknown]
  - Hepatic enzyme increased [Recovering/Resolving]
  - Nausea [Unknown]
  - Diarrhoea [Not Recovered/Not Resolved]
  - Flatulence [Unknown]

NARRATIVE: CASE EVENT DATE: 202010
